FAERS Safety Report 5810582-0 (Version None)
Quarter: 2008Q3

REPORT INFORMATION
  Report Type: 
  Country: None (occurrence: None)
  Receive Date: 20080709
  Receipt Date: 20080701
  Transmission Date: 20090109
  Serious: Yes (Other)
  Sender: FDA-Public Use
  Company Number: 2008SP013440

PATIENT

DRUGS (2)
  1. REBETOL [Suspect]
     Indication: CHRONIC HEPATITIS
  2. PEGASYS [Suspect]
     Indication: CHRONIC HEPATITIS

REACTIONS (1)
  - HYPERTHYROIDISM [None]
